FAERS Safety Report 12592629 (Version 4)
Quarter: 2017Q1

REPORT INFORMATION
  Report Type: Spontaneous
  Country: JP (occurrence: JP)
  Receive Date: 20160726
  Receipt Date: 20170130
  Transmission Date: 20170428
  Serious: Yes (Hospitalization, Other)
  Sender: FDA-Public Use
  Company Number: JP-GLAXOSMITHKLINE-JP2016JPN104245

PATIENT
  Age: 43 Year
  Sex: Male
  Weight: 97 kg

DRUGS (3)
  1. ROPION [Concomitant]
     Active Substance: FLURBIPROFEN AXETIL
     Dosage: 50 MG, QD
     Dates: start: 20160715, end: 20160715
  2. ZAGALLO [Suspect]
     Active Substance: DUTASTERIDE
     Indication: ANDROGENETIC ALOPECIA
     Dosage: 0.5 MG, QD
     Route: 048
     Dates: start: 20160617, end: 20160714
  3. FINASTERIDE. [Concomitant]
     Active Substance: FINASTERIDE
     Dosage: UNK
     Dates: start: 20160416, end: 20160616

REACTIONS (11)
  - Helicobacter gastritis [Recovered/Resolved]
  - Gastritis [Recovered/Resolved]
  - Duodenitis [Recovered/Resolved]
  - Haemorrhage [Recovering/Resolving]
  - Abdominal distension [Recovered/Resolved]
  - Gastric mucosal hypertrophy [Recovering/Resolving]
  - Abdominal pain [Recovering/Resolving]
  - Gastrointestinal mucosal disorder [Recovering/Resolving]
  - Abdominal pain upper [Recovered/Resolved]
  - Gastric ulcer [Recovering/Resolving]
  - Gastrooesophageal reflux disease [Recovering/Resolving]

NARRATIVE: CASE EVENT DATE: 20160714
